FAERS Safety Report 9410090 (Version 2)
Quarter: 2013Q4

REPORT INFORMATION
  Report Type: Spontaneous
  Country: GR (occurrence: GR)
  Receive Date: 20130719
  Receipt Date: 20131001
  Transmission Date: 20140711
  Serious: Yes (Other)
  Sender: FDA-Public Use
  Company Number: GR-MERCK-1307GRC009457

PATIENT
  Age: 25 Year
  Sex: 0

DRUGS (1)
  1. BRIDION [Suspect]
     Dosage: UNK UNK, ONCE

REACTIONS (4)
  - Muscle spasms [Recovered/Resolved]
  - Cough [Recovered/Resolved]
  - Dyspnoea [Recovered/Resolved]
  - Movement disorder [Recovered/Resolved]
